FAERS Safety Report 25369384 (Version 2)
Quarter: 2025Q3

REPORT INFORMATION
  Report Type: Spontaneous
  Country: AU (occurrence: AU)
  Receive Date: 20250528
  Receipt Date: 20250809
  Transmission Date: 20251020
  Serious: Yes (Other)
  Sender: ALEXION PHARMACEUTICALS
  Company Number: AU-AstraZeneca-CH-00879038A

PATIENT

DRUGS (2)
  1. OSIMERTINIB [Suspect]
     Active Substance: OSIMERTINIB
     Indication: Non-small cell lung cancer
  2. DATROWAY [Suspect]
     Active Substance: DATOPOTAMAB DERUXTECAN-DLNK
     Indication: Non-small cell lung cancer

REACTIONS (1)
  - Malignant neoplasm progression [Unknown]
